FAERS Safety Report 6288395-8 (Version None)
Quarter: 2009Q3

REPORT INFORMATION
  Report Type: 
  Country: None (occurrence: None)
  Receive Date: 20090729
  Receipt Date: 20090722
  Transmission Date: 20100115
  Serious: Yes (Hospitalization)
  Sender: FDA-Public Use
  Company Number: A0742030A

PATIENT
  Age: 44 Year
  Sex: Male
  Weight: 120.5 kg

DRUGS (9)
  1. AVANDIA [Suspect]
     Route: 048
     Dates: start: 20060101, end: 20070301
  2. AVANDAMET [Suspect]
     Dosage: 1TAB TWICE PER DAY
     Route: 048
     Dates: start: 20051027, end: 20060101
  3. LANTUS [Concomitant]
  4. CIPRO [Concomitant]
  5. FLAGYL [Concomitant]
  6. LISINOPRIL [Concomitant]
  7. LUNESTA [Concomitant]
  8. VALTREX [Concomitant]
  9. MERIDIA [Concomitant]

REACTIONS (1)
  - MYOCARDIAL INFARCTION [None]
